FAERS Safety Report 4563763-0 (Version None)
Quarter: 2005Q1

REPORT INFORMATION
  Report Type: 
  Country: None (occurrence: None)
  Receive Date: 20050121
  Receipt Date: 20050107
  Transmission Date: 20050727
  Serious: Yes (Hospitalization, Other)
  Sender: FDA-Public Use
  Company Number: USA041286788

PATIENT
  Age: 49 Year
  Sex: Male
  Weight: 130 kg

DRUGS (16)
  1. ALIMTA [Suspect]
     Indication: LUNG SQUAMOUS CELL CARCINOMA STAGE UNSPECIFIED
     Dosage: 1250 MG OTHER
     Dates: start: 20041001
  2. VITAMIN B-12 [Concomitant]
  3. FOLIC ACID [Concomitant]
  4. DECADRON [Concomitant]
  5. METHADONE HCL [Concomitant]
  6. ATIVAN [Concomitant]
  7. LEXAPRO [Concomitant]
  8. DALMANE [Concomitant]
  9. PROTONIX [Concomitant]
  10. STOOL SOFTENER (DOCUSATE SODIUM) [Concomitant]
  11. ZOFRAN (ODANSETRON HYDROCHLORIDE) [Concomitant]
  12. LISINOPRIL [Concomitant]
  13. MORPHINE [Concomitant]
  14. ADVAIR DISKUS 100/50 [Concomitant]
  15. ALBUTEROL [Concomitant]
  16. GLIPIZIDE [Concomitant]

REACTIONS (13)
  - ANXIETY [None]
  - BACK PAIN [None]
  - CONFUSIONAL STATE [None]
  - CRYING [None]
  - DEPRESSION [None]
  - ERYTHEMA [None]
  - GAIT DISTURBANCE [None]
  - HYPERHIDROSIS [None]
  - MEMORY IMPAIRMENT [None]
  - MENTAL STATUS CHANGES [None]
  - RECALL PHENOMENON [None]
  - RESTLESSNESS [None]
  - VERTIGO [None]
